FAERS Safety Report 21652082 (Version 1)
Quarter: 2022Q4

REPORT INFORMATION
  Report Type: Spontaneous
  Country: US (occurrence: None)
  Receive Date: 20221125
  Receipt Date: 20221125
  Transmission Date: 20230112
  Serious: Yes (Disabling)
  Sender: FDA-Public Use
  Company Number: None

PATIENT
  Age: 53 Year
  Sex: Male
  Weight: 99 kg

DRUGS (1)
  1. HYDRALAZINE [Suspect]
     Active Substance: HYDRALAZINE HYDROCHLORIDE
     Indication: Hypertension
     Dosage: OTHER QUANTITY : 2 TABLET(S);?FREQUENCY : EVERY 12 HOURS;?
     Route: 048

REACTIONS (1)
  - Eye irritation [None]

NARRATIVE: CASE EVENT DATE: 20221021
